FAERS Safety Report 11289466 (Version 1)
Quarter: 2015Q3

REPORT INFORMATION
  Report Type: Spontaneous
  Country: US (occurrence: US)
  Receive Date: 20150721
  Receipt Date: 20150721
  Transmission Date: 20151125
  Serious: No
  Sender: FDA-Public Use
  Company Number: US-TEVA-580193ACC

PATIENT
  Sex: Female

DRUGS (1)
  1. TAKE ACTION [Suspect]
     Active Substance: LEVONORGESTREL
     Dosage: MATERNAL DOSE: 1.5 MG
     Route: 064

REACTIONS (5)
  - Breast engorgement [Not Recovered/Not Resolved]
  - Feeling abnormal [Recovered/Resolved]
  - Feeding disorder of infancy or early childhood [Recovered/Resolved]
  - Exposure during breast feeding [Unknown]
  - Nipple disorder [Not Recovered/Not Resolved]

NARRATIVE: CASE EVENT DATE: 201503
